FAERS Safety Report 6093694-9 (Version None)
Quarter: 2009Q1

REPORT INFORMATION
  Report Type: 
  Country: None (occurrence: None)
  Receive Date: 20090223
  Receipt Date: 20090223
  Transmission Date: 20090719
  Serious: Yes (Other)
  Sender: FDA-Public Use
  Company Number: None

PATIENT
  Age: 77 Year
  Sex: Female
  Weight: 74.8435 kg

DRUGS (2)
  1. PANTOPRAZOLE SODIUM [Suspect]
     Indication: BARRETT'S OESOPHAGUS
     Dosage: 1 PO BID PO
     Route: 048
     Dates: start: 20080404, end: 20080416
  2. PANTOPRAZOLE SODIUM [Suspect]
     Indication: GASTRITIS
     Dosage: 1 PO BID PO
     Route: 048
     Dates: start: 20080404, end: 20080416

REACTIONS (2)
  - NAUSEA [None]
  - PALPITATIONS [None]
